FAERS Safety Report 4849494-8 (Version None)
Quarter: 2005Q4

REPORT INFORMATION
  Report Type: 
  Country: None (occurrence: None)
  Receive Date: 20051207
  Receipt Date: 20051128
  Transmission Date: 20060501
  Serious: Yes (Hospitalization)
  Sender: FDA-Public Use
  Company Number: 2005162140

PATIENT
  Age: 84 Year
  Sex: Male

DRUGS (7)
  1. ZOLOFT [Suspect]
     Indication: DEPRESSION
     Dosage: 50 MG
     Dates: start: 20050622
  2. ALDACTONE [Suspect]
     Indication: ILL-DEFINED DISORDER
     Dates: end: 20050101
  3. ATACAND [Suspect]
     Indication: ILL-DEFINED DISORDER
     Dates: end: 20050101
  4. BISOPROLOL FUMARATE [Concomitant]
  5. CORDARONE [Concomitant]
  6. PRAVASTATIN [Concomitant]
  7. ASPIRIN [Concomitant]

REACTIONS (2)
  - GRAND MAL CONVULSION [None]
  - HYPONATRAEMIA [None]
